FAERS Safety Report 4291705-4 (Version None)
Quarter: 2004Q1

REPORT INFORMATION
  Report Type: 
  Country: None (occurrence: None)
  Receive Date: 20040211
  Receipt Date: 20021111
  Transmission Date: 20041129
  Serious: No
  Sender: FDA-Public Use
  Company Number: US-GLAXOSMITHKLINE-A0386204A

PATIENT
  Age: 64 Year
  Sex: Female

DRUGS (4)
  1. IMITREX [Suspect]
     Route: 058
  2. INDERAL [Concomitant]
  3. PRILOSEC [Concomitant]
  4. LIBRAX [Concomitant]

REACTIONS (4)
  - INJECTION SITE HAEMORRHAGE [None]
  - PHARMACEUTICAL PRODUCT COMPLAINT [None]
  - PRURITUS [None]
  - URTICARIA [None]
